FAERS Safety Report 9052741 (Version 1)
Quarter: 2013Q1

REPORT INFORMATION
  Report Type: Spontaneous
  Country: US (occurrence: US)
  Receive Date: 20130207
  Receipt Date: 20130207
  Transmission Date: 20140127
  Serious: Yes (Other)
  Sender: FDA-Public Use
  Company Number: US-ROCHE-1181978

PATIENT
  Age: 75 None
  Sex: Female

DRUGS (1)
  1. XOLAIR [Suspect]
     Indication: ASTHMA
     Route: 065
     Dates: start: 20071227, end: 20121217

REACTIONS (3)
  - Swelling [Recovered/Resolved]
  - Alopecia [Not Recovered/Not Resolved]
  - Neoplasm skin [Unknown]
